FAERS Safety Report 5804926-3 (Version None)
Quarter: 2008Q3

REPORT INFORMATION
  Report Type: 
  Country: None (occurrence: None)
  Receive Date: 20080709
  Receipt Date: 20080630
  Transmission Date: 20090109
  Serious: Yes (Other)
  Sender: FDA-Public Use
  Company Number: PHBS2008IN04936

PATIENT
  Age: 36 Year
  Sex: Female

DRUGS (13)
  1. METOPROLOL SUCCINATE [Suspect]
     Indication: HYPERTENSION
     Dosage: 4 MG, ONCE/SINGLE
     Route: 042
  2. METOPROLOL SUCCINATE [Interacting]
     Indication: TACHYCARDIA
  3. LIDOCAINE [Interacting]
     Indication: INDUCTION OF ANAESTHESIA
     Dosage: 60 MG
  4. FENTANYL [Concomitant]
     Indication: INDUCTION OF ANAESTHESIA
     Dosage: 100 UG
     Route: 065
  5. FENTANYL [Concomitant]
     Dosage: 50 UG
     Route: 042
  6. THIOPENTAL SODIUM [Concomitant]
     Indication: INDUCTION OF ANAESTHESIA
     Dosage: 350 MG
  7. VECURONIUM BROMIDE [Concomitant]
     Indication: INDUCTION OF ANAESTHESIA
     Dosage: 6 MG
     Route: 065
  8. NITROUS OXIDE W/ OXYGEN [Concomitant]
     Indication: MAINTENANCE OF ANAESTHESIA
     Dosage: UNK
     Route: 065
  9. OXYGEN [Concomitant]
     Indication: MAINTENANCE OF ANAESTHESIA
     Dosage: UNK,UNK
     Route: 065
  10. ISOFLURANE [Concomitant]
     Indication: MAINTENANCE OF ANAESTHESIA
     Dosage: UNK
     Route: 065
  11. MORPHINE [Concomitant]
     Indication: MAINTENANCE OF ANAESTHESIA
     Route: 065
  12. PROPOFOL [Concomitant]
     Indication: MAINTENANCE OF ANAESTHESIA
     Dosage: 50 UG/KG/MIN
  13. PROPOFOL [Concomitant]
     Dosage: 30 UM/KG/MIN

REACTIONS (2)
  - ANAESTHETIC COMPLICATION [None]
  - HEART RATE DECREASED [None]
